FAERS Safety Report 20719610 (Version 1)
Quarter: 2022Q2

REPORT INFORMATION
  Report Type: Spontaneous
  Country: HR (occurrence: HR)
  Receive Date: 20220418
  Receipt Date: 20220418
  Transmission Date: 20220721
  Serious: Yes (Other)
  Sender: FDA-Public Use
  Company Number: None

PATIENT
  Sex: Female
  Weight: 70 kg

DRUGS (5)
  1. BISOPROLOL [Suspect]
     Active Substance: BISOPROLOL
     Indication: Product used for unknown indication
     Dosage: 5 DOSAGE FORM, QD (1 DF, 1 TABLETA)
     Route: 048
     Dates: start: 20220320, end: 20220320
  2. NORMABEL [Suspect]
     Active Substance: DIAZEPAM
     Indication: Product used for unknown indication
     Dosage: 130 MG, QD
     Route: 048
     Dates: start: 20220320, end: 20220320
  3. ALPRAZOLAM [Suspect]
     Active Substance: ALPRAZOLAM
     Indication: Product used for unknown indication
     Dosage: 10 DOSAGE FORM, QD (1 DF, 1 TABLETA)
     Route: 048
     Dates: start: 20220320, end: 20220320
  4. PRAZINE (PROMAZINE HYDROCHLORIDE) [Suspect]
     Active Substance: PROMAZINE HYDROCHLORIDE
     Indication: Product used for unknown indication
     Dosage: 35 DOSAGE FORM, QD (1 DF, 1 TABLETA)
     Route: 048
     Dates: start: 20220322, end: 20220322
  5. OLANZAPINE [Suspect]
     Active Substance: OLANZAPINE
     Indication: Product used for unknown indication
     Dosage: 7 DOSAGE FORM, QD (1 DF, 1 TABLETA)
     Route: 048
     Dates: start: 20220320, end: 20220320

REACTIONS (3)
  - Somnolence [Unknown]
  - Suicide attempt [Unknown]
  - Intentional overdose [Unknown]

NARRATIVE: CASE EVENT DATE: 20220320
